FAERS Safety Report 6062140-3 (Version None)
Quarter: 2009Q1

REPORT INFORMATION
  Report Type: 
  Country: None (occurrence: None)
  Receive Date: 20090130
  Receipt Date: 20090130
  Transmission Date: 20090719
  Serious: Yes (Other)
  Sender: FDA-Public Use
  Company Number: None

PATIENT
  Age: 46 Year
  Sex: Male
  Weight: 83.0083 kg

DRUGS (1)
  1. CHANTIX [Suspect]
     Indication: SMOKING CESSATION THERAPY
     Dosage: 1 PILL TWICE A DAY PO
     Route: 048
     Dates: start: 20080202, end: 20080423

REACTIONS (22)
  - AGITATION [None]
  - ANOREXIA [None]
  - ANXIETY [None]
  - APATHY [None]
  - BLOOD PRESSURE INCREASED [None]
  - COLD SWEAT [None]
  - DEPRESSION [None]
  - ERECTILE DYSFUNCTION [None]
  - FEELING COLD [None]
  - FEELING HOT [None]
  - FEELING JITTERY [None]
  - HEART RATE INCREASED [None]
  - HYPOPHAGIA [None]
  - LOSS OF EMPLOYMENT [None]
  - LOSS OF LIBIDO [None]
  - PARANOIA [None]
  - PERIPHERAL COLDNESS [None]
  - POOR QUALITY SLEEP [None]
  - TEMPERATURE INTOLERANCE [None]
  - TREMOR [None]
  - TRISMUS [None]
  - VOMITING [None]
